FAERS Safety Report 9467819 (Version 1)
Quarter: 2013Q3

REPORT INFORMATION
  Report Type: Spontaneous
  Country: US (occurrence: None)
  Receive Date: 20130819
  Receipt Date: 20130819
  Transmission Date: 20140515
  Serious: No
  Sender: FDA-Public Use
  Company Number: None

PATIENT
  Sex: 0

DRUGS (2)
  1. XARELTO (RIVAROXABAN) [Suspect]
  2. DILTIAZEM [Suspect]

REACTIONS (9)
  - Dyspnoea [None]
  - Gastrointestinal haemorrhage [None]
  - Inhibitory drug interaction [None]
  - Anaemia [None]
  - Hypovolaemia [None]
  - Prothrombin time prolonged [None]
  - Acute prerenal failure [None]
  - Medication error [None]
  - Activated partial thromboplastin time prolonged [None]
